FAERS Safety Report 4324495-7 (Version None)
Quarter: 2004Q1

REPORT INFORMATION
  Report Type: 
  Country: None (occurrence: None)
  Receive Date: 20040326
  Receipt Date: 20040219
  Transmission Date: 20041129
  Serious: No
  Sender: FDA-Public Use
  Company Number: US-GLAXOSMITHKLINE-A0499247A

PATIENT
  Sex: Male

DRUGS (10)
  1. ADVAIR DISKUS 100/50 [Suspect]
     Route: 055
  2. ALPHAGAN [Concomitant]
  3. CARDURA [Concomitant]
  4. FOLIC ACID [Concomitant]
  5. PRILOSEC [Concomitant]
  6. SPIRONOLACTONE [Concomitant]
  7. FUROSEMIDE [Concomitant]
  8. ATROVENT [Concomitant]
  9. UNKNOWN MEDICATION [Concomitant]
  10. AMIODARONE HCL [Concomitant]

REACTIONS (2)
  - POSTNASAL DRIP [None]
  - RHINORRHOEA [None]
